FAERS Safety Report 18117951 (Version 1)
Quarter: 2020Q3

REPORT INFORMATION
  Report Type: Spontaneous
  Country: US (occurrence: US)
  Receive Date: 20200805
  Receipt Date: 20200805
  Transmission Date: 20201103
  Serious: Yes (Disabling)
  Sender: FDA-Public Use
  Company Number: None

PATIENT
  Age: 51 Year
  Sex: Female

DRUGS (7)
  1. BLUMEN ADVANCED HAND SANITIZER [Suspect]
     Active Substance: ALCOHOL
     Indication: COVID-19
     Dates: start: 20200601, end: 20200714
  2. VITAMIND [Concomitant]
  3. CALCIUM CHEWS [Concomitant]
  4. FLUVOXAMINE [Concomitant]
     Active Substance: FLUVOXAMINE
  5. VITAMIN B12 [Concomitant]
     Active Substance: CYANOCOBALAMIN
  6. ENTIVIYO [Concomitant]
  7. LORAZEPAM. [Concomitant]
     Active Substance: LORAZEPAM

REACTIONS (3)
  - Vision blurred [None]
  - Thermal burn [None]
  - Burning sensation [None]

NARRATIVE: CASE EVENT DATE: 20200714
